FAERS Safety Report 8882499 (Version 2)
Quarter: 2013Q1

REPORT INFORMATION
  Report Type: Report from Study
  Country: BR (occurrence: BR)
  Receive Date: 20121102
  Receipt Date: 20130115
  Transmission Date: 20140127
  Serious: Yes (Hospitalization, Other)
  Sender: FDA-Public Use
  Company Number: BR-ASTRAZENECA-2012SE82927

PATIENT
  Age: 55 Year
  Sex: Male

DRUGS (4)
  1. CRESTOR [Suspect]
     Indication: BLOOD CHOLESTEROL INCREASED
     Route: 048
     Dates: start: 201102
  2. ATENOLOL [Suspect]
     Indication: HYPERTENSION
     Route: 048
     Dates: end: 201210
  3. BRILINTA [Suspect]
     Indication: ANTICOAGULANT THERAPY
     Route: 048
     Dates: start: 201210
  4. CLOPIDOGREL [Concomitant]
     Indication: ANTICOAGULANT THERAPY
     Dates: start: 201102, end: 201210

REACTIONS (3)
  - Coronary artery occlusion [Recovered/Resolved]
  - Thrombosis [Recovered/Resolved]
  - Chest pain [Recovered/Resolved]
